FAERS Safety Report 14577070 (Version 4)
Quarter: 2018Q2

REPORT INFORMATION
  Report Type: Report from Study
  Country: US (occurrence: US)
  Receive Date: 20180227
  Receipt Date: 20180509
  Transmission Date: 20180711
  Serious: Yes (Hospitalization, Other)
  Sender: FDA-Public Use
  Company Number: US-BAYER-2018-033112

PATIENT
  Age: 70 Year
  Sex: Male

DRUGS (2)
  1. NEXAVAR [Suspect]
     Active Substance: SORAFENIB
     Indication: HEPATOCELLULAR CARCINOMA
     Dosage: 200 MG, BID
     Route: 048
     Dates: start: 20180206
  2. NEXAVAR [Suspect]
     Active Substance: SORAFENIB
     Indication: HEPATOCELLULAR CARCINOMA
     Dosage: 400 MG, BID
     Route: 048
     Dates: end: 20180323

REACTIONS (12)
  - Unresponsive to stimuli [Recovered/Resolved]
  - Lung infection [None]
  - Orthostatic hypotension [Not Recovered/Not Resolved]
  - Lung infection [Not Recovered/Not Resolved]
  - Hypotension [None]
  - Presyncope [Recovered/Resolved]
  - Off label use [None]
  - Decreased appetite [None]
  - Pyrexia [Recovered/Resolved]
  - Hepatocellular carcinoma [None]
  - Supine hypertension [Not Recovered/Not Resolved]
  - Asthenia [Recovered/Resolved]

NARRATIVE: CASE EVENT DATE: 20180210
